FAERS Safety Report 7113123-3 (Version None)
Quarter: 2010Q4

REPORT INFORMATION
  Report Type: 
  Country: None (occurrence: None)
  Receive Date: 20101119
  Receipt Date: 20101108
  Transmission Date: 20110411
  Serious: Yes (Other)
  Sender: FDA-Public Use
  Company Number: US-JNJFOC-20100807705

PATIENT
  Sex: Female
  Weight: 78.02 kg

DRUGS (6)
  1. USTEKINUMAB [Suspect]
     Indication: PSORIASIS
     Route: 058
  2. USTEKINUMAB [Suspect]
     Route: 058
  3. WELLBUTRIN XL [Concomitant]
  4. METFORMIN HCL [Concomitant]
  5. YASMIN [Concomitant]
  6. MULTI-VITAMINS [Concomitant]

REACTIONS (4)
  - ANGIOPATHY [None]
  - HEADACHE [None]
  - NAUSEA [None]
  - THROMBOSIS [None]
